FAERS Safety Report 8396390-8 (Version None)
Quarter: 2012Q2

REPORT INFORMATION
  Report Type: 
  Country: None (occurrence: None)
  Receive Date: 20120530
  Receipt Date: 20120523
  Transmission Date: 20120825
  Serious: Yes (Hospitalization)
  Sender: FDA-Public Use
  Company Number: US-MERCK-1108USA02949

PATIENT
  Age: 54 Year
  Sex: Female

DRUGS (3)
  1. FOSAMAX [Suspect]
     Route: 048
     Dates: start: 20090601, end: 20090801
  2. FOSAMAX [Suspect]
     Indication: OSTEOPENIA
     Route: 048
     Dates: start: 20000301, end: 20090501
  3. FOSAMAX [Suspect]
     Indication: OSTEOPOROSIS
     Route: 048
     Dates: start: 20000301, end: 20090501

REACTIONS (6)
  - FEMUR FRACTURE [None]
  - CARDIAC DISORDER [None]
  - ASTHMA [None]
  - OSTEOARTHRITIS [None]
  - BLOOD POTASSIUM DECREASED [None]
  - MUSCULOSKELETAL DISORDER [None]
